FAERS Safety Report 9507139 (Version 2)
Quarter: 2014Q1

REPORT INFORMATION
  Report Type: Spontaneous
  Country: JP (occurrence: None)
  Receive Date: 20130904
  Receipt Date: 20140122
  Transmission Date: 20141002
  Serious: Yes (Hospitalization)
  Sender: FDA-Public Use
  Company Number: JP-20130073

PATIENT
  Age: 64 Year
  Sex: Male

DRUGS (15)
  1. OXILAN [Suspect]
     Indication: ANGIOPATHY
     Route: 013
     Dates: start: 20130328, end: 20130328
  2. IOPAMIRON (IOPAMIDOL) [Suspect]
     Indication: SCAN
     Route: 013
     Dates: start: 20130329
  3. LOXONIN [Suspect]
     Indication: PAIN
     Route: 048
     Dates: start: 20130328
  4. BAYASPIRIN (ACETYLSALICYLIC ACID) (ACETYLSALICYLIC ACID) [Concomitant]
  5. PLAVIX (CLOPIDOGREL) (CLOPIDOGREL) [Concomitant]
  6. TIENAM (CILASTATIN SODIUM, IMIPENEM) (CILASTATIN SODIUM, IMIPENEM) [Concomitant]
  7. VANCOMYCIN (VANCOMYCIN) (VANCOMYCIN) [Concomitant]
  8. FERO-GRADUMET (FERROUS SULFATE) FERROUS SULFATE) [Concomitant]
  9. OMEPRAL (OMEPRAZOLE SODIUM) (OMEPRAZOLE SODIUM) [Concomitant]
  10. EBASTEL (EBASTINE) (EBASTINE) [Concomitant]
  11. MAINTATE (BISOPROLOL FUMARATE) (BISOPROLOL FUMARATE) [Concomitant]
  12. DEPAS (ETIZOLAM) (ETIZOLAM) [Concomitant]
  13. ITOROL (ISOSORBIDE MONONITRATE) (ISOSORBIDE MONONITRATE) [Concomitant]
  14. PAXIL CR (PAROXETINE) (PAROXETINE) [Concomitant]
  15. PRECIPITATED CALCIUM CARBONATE (CALCIUM CARBONATE) (CALCIUM CARBONATE) [Concomitant]

REACTIONS (4)
  - Stevens-Johnson syndrome [None]
  - Hypoaesthesia [None]
  - Headache [None]
  - Coronary artery stenosis [None]
